FAERS Safety Report 4439892-9 (Version None)
Quarter: 2004Q3

REPORT INFORMATION
  Report Type: 
  Country: None (occurrence: None)
  Receive Date: 20040902
  Receipt Date: 20020516
  Transmission Date: 20050211
  Serious: Yes (Hospitalization, Disabling)
  Sender: FDA-Public Use
  Company Number: US-MERCK-0205USA02005

PATIENT
  Age: 54 Year
  Sex: Female
  Weight: 61 kg

DRUGS (6)
  1. PLENDIL [Concomitant]
     Route: 065
     Dates: start: 20000101
  2. DYAZIDE [Concomitant]
     Route: 065
     Dates: start: 20000101, end: 20030707
  3. VIOXX [Suspect]
     Indication: TENDONITIS
     Route: 048
     Dates: start: 20000911
  4. VIOXX [Suspect]
     Route: 048
     Dates: start: 20010101
  5. VIOXX [Suspect]
     Indication: ARTHRITIS
     Route: 048
     Dates: start: 20000911
  6. VIOXX [Suspect]
     Route: 048
     Dates: start: 20010101

REACTIONS (24)
  - ABDOMINAL DISTENSION [None]
  - ABNORMAL SENSATION IN EYE [None]
  - ACQUIRED NIGHT BLINDNESS [None]
  - ASTHENOPIA [None]
  - BRAIN STEM SYNDROME [None]
  - CEREBROVASCULAR ACCIDENT [None]
  - CONSTIPATION [None]
  - DYSPEPSIA [None]
  - EMOTIONAL DISTRESS [None]
  - FACIAL PALSY [None]
  - HAEMATOCHEZIA [None]
  - HYPERLIPIDAEMIA [None]
  - HYPERSENSITIVITY [None]
  - HYPERTENSION [None]
  - KERATOCONJUNCTIVITIS SICCA [None]
  - OSTEOPENIA [None]
  - PEPTIC ULCER [None]
  - PHOTOSENSITIVITY REACTION [None]
  - ROTATOR CUFF SYNDROME [None]
  - SIMPLE PARTIAL SEIZURES [None]
  - URINE FLOW DECREASED [None]
  - VISION BLURRED [None]
  - VISUAL ACUITY REDUCED [None]
  - WEIGHT INCREASED [None]
